FAERS Safety Report 5066387-4 (Version None)
Quarter: 2006Q3

REPORT INFORMATION
  Report Type: 
  Country: None (occurrence: None)
  Receive Date: 20060801
  Receipt Date: 20060726
  Transmission Date: 20061208
  Serious: Yes (Hospitalization)
  Sender: FDA-Public Use
  Company Number: JP-AVENTIS-200612375JP

PATIENT
  Age: 12 Month
  Sex: Male

DRUGS (3)
  1. LASIX [Suspect]
     Indication: CARDIAC HYPERTROPHY
  2. LASIX [Suspect]
  3. OXYGEN [Suspect]
     Route: 055

REACTIONS (1)
  - HEPATOBLASTOMA [None]
